FAERS Safety Report 13446835 (Version 1)
Quarter: 2017Q2

REPORT INFORMATION
  Report Type: Spontaneous
  Country: US (occurrence: US)
  Receive Date: 20170414
  Receipt Date: 20170414
  Transmission Date: 20170830
  Serious: Yes (Other)
  Sender: FDA-Public Use
  Company Number: None

PATIENT
  Age: 23 Year
  Sex: Female
  Weight: 67.5 kg

DRUGS (2)
  1. PITOCIN [Suspect]
     Active Substance: OXYTOCIN
     Indication: LABOUR INDUCTION
     Dosage: OTHER FREQUENCY:INFUSION;?
     Route: 041
     Dates: start: 20170407, end: 20170407
  2. PITOCIN [Suspect]
     Active Substance: OXYTOCIN
     Indication: LABOUR INDUCTION
     Dosage: OTHER FREQUENCY:INFUSION;?
     Route: 041
     Dates: start: 20170407, end: 20170407

REACTIONS (7)
  - Foetal distress syndrome [None]
  - Premature separation of placenta [None]
  - Maternal exposure during pregnancy [None]
  - Maternal drugs affecting foetus [None]
  - Caesarean section [None]
  - Uterine hyperstimulation [None]
  - Uterine hypertonus [None]

NARRATIVE: CASE EVENT DATE: 20170408
